FAERS Safety Report 7648060-9 (Version None)
Quarter: 2011Q3

REPORT INFORMATION
  Report Type: 
  Country: None (occurrence: None)
  Receive Date: 20110801
  Receipt Date: 20110725
  Transmission Date: 20111222
  Serious: Yes (Other)
  Sender: FDA-Public Use
  Company Number: US-PFIZER INC-2011109063

PATIENT
  Sex: Female
  Weight: 58.957 kg

DRUGS (8)
  1. XALATAN [Suspect]
     Dosage: UNK
  2. CETIRIZINE [Concomitant]
     Indication: HYPERSENSITIVITY
     Dosage: 10 MG, 1X/DAY
  3. LATANOPROST [Suspect]
     Indication: GLAUCOMA
     Dosage: 1 GTT, 1X/DAY
     Route: 047
     Dates: start: 20110401, end: 20110501
  4. SYNTHROID [Concomitant]
     Indication: THYROID DISORDER
     Dosage: 112 UG, 1X/DAY
     Route: 048
  5. LATANOPROST [Suspect]
     Indication: INTRAOCULAR PRESSURE INCREASED
  6. CLONAZEPAM [Concomitant]
     Dosage: UNK
  7. POLYTRIM [Concomitant]
     Dosage: UNK
     Dates: start: 20110415, end: 20110422
  8. HYDROCHLOROTHIAZIDE [Concomitant]
     Indication: HYPERTENSION
     Dosage: 25 MG, 1X/DAY

REACTIONS (7)
  - EYE INFECTION BACTERIAL [None]
  - OCULAR HYPERAEMIA [None]
  - DRY EYE [None]
  - EYE SWELLING [None]
  - PRURITUS [None]
  - RASH [None]
  - DRY SKIN [None]
